FAERS Safety Report 10164409 (Version 1)
Quarter: 2014Q2

REPORT INFORMATION
  Report Type: Spontaneous
  Country: US (occurrence: US)
  Receive Date: 20140510
  Receipt Date: 20140510
  Transmission Date: 20141212
  Serious: No
  Sender: FDA-Public Use
  Company Number: US-BRISTOL-MYERS SQUIBB COMPANY-20147021

PATIENT
  Age: 51 Year
  Sex: Male

DRUGS (3)
  1. BYETTA PEN DISPOSABLE [Suspect]
     Dates: end: 201312
  2. METFORMIN [Concomitant]
  3. GLIMEPIRIDE [Concomitant]

REACTIONS (2)
  - Abdominal discomfort [Unknown]
  - Glycosylated haemoglobin increased [Unknown]
